FAERS Safety Report 7198052-1 (Version None)
Quarter: 2010Q4

REPORT INFORMATION
  Report Type: 
  Country: None (occurrence: None)
  Receive Date: 20101213
  Receipt Date: 20101129
  Transmission Date: 20110411
  Serious: Yes (Other)
  Sender: FDA-Public Use
  Company Number: MPS1-1000281

PATIENT
  Age: 2 Year
  Sex: Female
  Weight: 13 kg

DRUGS (1)
  1. ALDURAZYME [Suspect]
     Indication: MUCOPOLYSACCHARIDOSIS I
     Dosage: 0.58 MG/KG, QW, INTRAVENOUS
     Route: 042
     Dates: start: 20090903

REACTIONS (7)
  - CYANOSIS [None]
  - HEART RATE INCREASED [None]
  - HYPERSENSITIVITY [None]
  - HYPERTENSION [None]
  - INFUSION RELATED REACTION [None]
  - PALLOR [None]
  - TREMOR [None]
